FAERS Safety Report 9455785 (Version 4)
Quarter: 2013Q3

REPORT INFORMATION
  Report Type: Spontaneous
  Country: US (occurrence: US)
  Receive Date: 20130813
  Receipt Date: 20130830
  Transmission Date: 20140515
  Serious: Yes (Death, Hospitalization, Other)
  Sender: FDA-Public Use
  Company Number: US-B.I. PHARMACEUTICALS,INC./RIDGEFIELD-2013-BI-24464BP

PATIENT
  Age: 74 Year
  Sex: Female

DRUGS (16)
  1. PRADAXA [Suspect]
     Indication: CARDIOVASCULAR EVENT PROPHYLAXIS
     Dosage: 300 MG
     Dates: start: 20110103
  2. PRADAXA [Suspect]
     Indication: ATRIAL FIBRILLATION
  3. CALCIUM 500 [Concomitant]
     Route: 048
  4. COZAAR [Concomitant]
     Dosage: 100 MG
     Route: 048
  5. DIGOXIN [Concomitant]
     Dosage: 250 MCG
     Route: 048
     Dates: start: 20120713
  6. FLAX SEED OIL [Concomitant]
     Dosage: 1000 MG
  7. FOLIC ACID [Concomitant]
     Dosage: 1 MG
  8. METOPROLOL TARTRATE [Concomitant]
     Dosage: 100 MG
     Route: 048
     Dates: start: 20120823
  9. MULTAQ ORAL TABLET [Concomitant]
     Dosage: 800 MG
     Route: 048
     Dates: start: 20130627
  10. MULTIVITAMIN [Concomitant]
     Dosage: 1 ANZ
     Route: 048
  11. SIMVASTATIN [Concomitant]
     Dosage: 20 MG
     Route: 048
     Dates: start: 20120711
  12. SYNTHROID [Concomitant]
     Dosage: 100 MG
     Route: 048
  13. TUMS ORAL [Concomitant]
     Dosage: 1000 MG
     Route: 048
  14. TYLENOL [Concomitant]
     Dosage: 1950 MG
     Route: 048
  15. VITAMIN B 6 [Concomitant]
     Dosage: 100 MG
     Route: 048
  16. VITAMIN D [Concomitant]
     Dosage: 200 U

REACTIONS (1)
  - Myocardial infarction [Fatal]
